FAERS Safety Report 9882197 (Version 1)
Quarter: 2014Q1

REPORT INFORMATION
  Report Type: Spontaneous
  Country: BR (occurrence: BR)
  Receive Date: 20140207
  Receipt Date: 20140207
  Transmission Date: 20141002
  Serious: Yes (Disabling)
  Sender: FDA-Public Use
  Company Number: BR-SA-2014SA013007

PATIENT
  Sex: Female

DRUGS (2)
  1. LANTUS [Suspect]
     Indication: DIABETES MELLITUS
     Route: 058
     Dates: start: 200804
  2. DEVICE NOS [Suspect]
     Indication: DEVICE THERAPY
     Route: 058

REACTIONS (1)
  - Disability [Not Recovered/Not Resolved]
